FAERS Safety Report 5601125-5 (Version None)
Quarter: 2008Q1

REPORT INFORMATION
  Report Type: 
  Country: None (occurrence: None)
  Receive Date: 20080124
  Receipt Date: 20080111
  Transmission Date: 20080703
  Serious: Yes (Hospitalization)
  Sender: FDA-Public Use
  Company Number: AU-AMGEN-US258931

PATIENT
  Sex: Male
  Weight: 72 kg

DRUGS (9)
  1. NEULASTA [Suspect]
     Indication: CHEMOTHERAPY
     Route: 058
     Dates: start: 20071208
  2. NEULASTA [Suspect]
     Route: 058
     Dates: start: 20070825, end: 20070825
  3. NEULASTA [Suspect]
     Route: 058
     Dates: start: 20070929, end: 20070929
  4. NEULASTA [Suspect]
     Route: 058
     Dates: start: 20071103, end: 20071103
  5. RITUXIMAB [Suspect]
     Route: 042
     Dates: start: 20070822, end: 20071205
  6. IFOSFAMIDE [Suspect]
     Route: 042
     Dates: start: 20070822, end: 20071207
  7. ETOPOSIDE [Suspect]
     Route: 042
     Dates: start: 20070822, end: 20071207
  8. MESNA [Concomitant]
     Route: 048
     Dates: start: 20071205, end: 20071207
  9. MESNA [Concomitant]
     Route: 042
     Dates: start: 20071205, end: 20071207

REACTIONS (6)
  - ANAEMIA [None]
  - DRUG INEFFECTIVE [None]
  - FEBRILE NEUTROPENIA [None]
  - THROMBOCYTOPENIA [None]
  - UPPER RESPIRATORY TRACT INFECTION [None]
  - WHITE BLOOD CELL COUNT DECREASED [None]
